FAERS Safety Report 21159033 (Version 1)
Quarter: 2022Q3

REPORT INFORMATION
  Report Type: Spontaneous
  Country: US (occurrence: US)
  Receive Date: 20220802
  Receipt Date: 20220802
  Transmission Date: 20221027
  Serious: Yes (Other)
  Sender: FDA-Public Use
  Company Number: US-GILEAD-2022-0591656

PATIENT
  Sex: Male

DRUGS (6)
  1. HARVONI [Suspect]
     Active Substance: LEDIPASVIR\SOFOSBUVIR
     Indication: Hepatitis C
     Dosage: UNKNOWN|UNKNOWN\UNKNOWN
     Route: 065
     Dates: start: 2020, end: 2020
  2. OMEPRAZOLE [Concomitant]
     Active Substance: OMEPRAZOLE
  3. LOSARTAN POTASSIUM [Concomitant]
     Active Substance: LOSARTAN POTASSIUM
  4. FINASTERIDE [Concomitant]
     Active Substance: FINASTERIDE
  5. BENADRYL ALLERGY RELIEF [Concomitant]
  6. TAMSULOSIN HYDROCHLORIDE [Concomitant]
     Active Substance: TAMSULOSIN HYDROCHLORIDE

REACTIONS (2)
  - Hepatic cancer [Unknown]
  - Hepatitis C [Unknown]
